APPROVED DRUG PRODUCT: ZEGERID
Active Ingredient: MAGNESIUM HYDROXIDE; OMEPRAZOLE; SODIUM BICARBONATE
Strength: 700MG;20MG;600MG
Dosage Form/Route: TABLET, CHEWABLE;ORAL
Application: N021850 | Product #001
Applicant: SANTARUS INC
Approved: Mar 24, 2006 | RLD: No | RS: No | Type: DISCN